FAERS Safety Report 15134597 (Version 1)
Quarter: 2018Q3

REPORT INFORMATION
  Report Type: Spontaneous
  Country: US (occurrence: US)
  Receive Date: 20180615
  Receipt Date: 20180615
  Transmission Date: 20181010
  Serious: Yes (Hospitalization)
  Sender: FDA-Public Use
  Company Number: None

PATIENT
  Age: 63 Year
  Sex: Male
  Weight: 72.7 kg

DRUGS (3)
  1. ETOPOSIDE (VP?16) [Suspect]
     Active Substance: ETOPOSIDE
     Dates: end: 20180523
  2. LIPITOR [Concomitant]
     Active Substance: ATORVASTATIN CALCIUM
  3. CISPLATIN. [Suspect]
     Active Substance: CISPLATIN
     Dates: end: 20180521

REACTIONS (3)
  - Chest pain [None]
  - Deafness [None]
  - Tinnitus [None]

NARRATIVE: CASE EVENT DATE: 20180611
